FAERS Safety Report 24987607 (Version 2)
Quarter: 2025Q1

REPORT INFORMATION
  Report Type: Spontaneous
  Country: ES (occurrence: ES)
  Receive Date: 20250219
  Receipt Date: 20250225
  Transmission Date: 20250409
  Serious: Yes (Death, Other)
  Sender: GILEAD
  Company Number: None

PATIENT
  Age: 64 Year
  Sex: Male
  Weight: 115 kg

DRUGS (1)
  1. YESCARTA [Suspect]
     Active Substance: AXICABTAGENE CILOLEUCEL
     Indication: Diffuse large B-cell lymphoma
     Route: 042
     Dates: start: 20240813, end: 20240813

REACTIONS (5)
  - Pancytopenia [Fatal]
  - Immune effector cell-associated neurotoxicity syndrome [Fatal]
  - Immune effector cell-associated neurotoxicity syndrome [Fatal]
  - Transaminases increased [Fatal]
  - Cytokine release syndrome [Fatal]

NARRATIVE: CASE EVENT DATE: 20240814
